FAERS Safety Report 15439294 (Version 1)
Quarter: 2018Q3

REPORT INFORMATION
  Report Type: Spontaneous
  Country: US (occurrence: US)
  Receive Date: 20180924
  Receipt Date: 20180924
  Transmission Date: 20181010
  Serious: Yes (Other)
  Sender: FDA-Public Use
  Company Number: None

PATIENT
  Age: 81 Year
  Sex: Female
  Weight: 56.7 kg

DRUGS (9)
  1. ALENDRONATE 70 MG [Suspect]
     Active Substance: ALENDRONATE SODIUM
     Dosage: ?          QUANTITY:1 DF DOSAGE FORM;?
     Route: 048
     Dates: start: 20180218, end: 20180823
  2. BIOTIN [Concomitant]
     Active Substance: BIOTIN
  3. VITAMIN A [Concomitant]
     Active Substance: VITAMIN A
  4. VITAMIN D3 [Concomitant]
     Active Substance: CHOLECALCIFEROL
  5. VITAMIN E [Concomitant]
     Active Substance: .ALPHA.-TOCOPHEROL
  6. NIACIN. [Concomitant]
     Active Substance: NIACIN
  7. VITAMIN B12 [Concomitant]
     Active Substance: CYANOCOBALAMIN
  8. BIOTIES [Concomitant]
  9. VITAMIN C [Concomitant]
     Active Substance: ASCORBIC ACID

REACTIONS (4)
  - Exostosis [None]
  - Musculoskeletal disorder [None]
  - Product use complaint [None]
  - Pain in extremity [None]

NARRATIVE: CASE EVENT DATE: 20180823
